FAERS Safety Report 22232573 (Version 1)
Quarter: 2023Q2

REPORT INFORMATION
  Report Type: Spontaneous
  Country: US (occurrence: None)
  Receive Date: 20230420
  Receipt Date: 20230420
  Transmission Date: 20230722
  Serious: No
  Sender: FDA-Public Use
  Company Number: US-ROCHE-3139696

PATIENT
  Sex: Female

DRUGS (8)
  1. ESBRIET [Suspect]
     Active Substance: PIRFENIDONE
     Indication: Pulmonary fibrosis
     Dosage: TAKE 1 TAB 3 TIMES DAILY X1 WEEK, 2 TABS 3 TIMES DAILY X1 WEEK, THEN 3 TABS 3 TIMES DAILY WITH MEALS
     Route: 048
     Dates: start: 20220708
  2. AZATHIOPRINE [Concomitant]
     Active Substance: AZATHIOPRINE
  3. CALCIUM [Concomitant]
     Active Substance: CALCIUM
     Dosage: 600+TAB 600-400M
  4. MINERALS\VITAMINS [Concomitant]
     Active Substance: MINERALS\VITAMINS
  5. CETIRIZINE HCL [Concomitant]
     Active Substance: CETIRIZINE HYDROCHLORIDE
  6. FAMOTIDINE [Concomitant]
     Active Substance: FAMOTIDINE
  7. DIETARY SUPPLEMENT\HERBALS\MILK THISTLE [Concomitant]
     Active Substance: MILK THISTLE
  8. VITAMIN C [Concomitant]
     Active Substance: ASCORBIC ACID

REACTIONS (1)
  - Arthralgia [Not Recovered/Not Resolved]
